FAERS Safety Report 11574172 (Version 1)
Quarter: 2015Q3

REPORT INFORMATION
  Report Type: Report from Study
  Country: FR (occurrence: FR)
  Receive Date: 20150930
  Receipt Date: 20150930
  Transmission Date: 20151125
  Serious: Yes (Other)
  Sender: FDA-Public Use
  Company Number: FR-ROCHE-1638460

PATIENT
  Age: 72 Year
  Sex: Female

DRUGS (2)
  1. 5-FLUOROURACIL [Concomitant]
     Active Substance: FLUOROURACIL
  2. BEVACIZUMAB [Suspect]
     Active Substance: BEVACIZUMAB
     Indication: ADENOCARCINOMA OF COLON
     Route: 042

REACTIONS (1)
  - Osteonecrosis [Recovering/Resolving]
